FAERS Safety Report 9377149 (Version 1)
Quarter: 2013Q3

REPORT INFORMATION
  Report Type: Report from Study
  Country: KR (occurrence: KR)
  Receive Date: 20130701
  Receipt Date: 20130701
  Transmission Date: 20140515
  Serious: Yes (Other)
  Sender: FDA-Public Use
  Company Number: KR-ROCHE-1240495

PATIENT
  Sex: 0

DRUGS (1)
  1. MYCOPHENOLATE MOFETIL [Suspect]
     Indication: RENAL TRANSPLANT
     Route: 065

REACTIONS (5)
  - Pericarditis [Unknown]
  - Infection [Unknown]
  - Gastrointestinal disorder [Unknown]
  - Hyperglycaemia [Unknown]
  - Transplant rejection [Unknown]
